FAERS Safety Report 19063714 (Version 2)
Quarter: 2021Q2

REPORT INFORMATION
  Report Type: Spontaneous
  Country: US (occurrence: US)
  Receive Date: 20210326
  Receipt Date: 20210421
  Transmission Date: 20210717
  Serious: Yes (Hospitalization)
  Sender: FDA-Public Use
  Company Number: US-ACELLA PHARMACEUTICALS, LLC-2108487

PATIENT
  Age: 80 Year
  Sex: Female

DRUGS (2)
  1. NP THYROID [Suspect]
     Active Substance: LEVOTHYROXINE\LIOTHYRONINE
     Indication: BASEDOW^S DISEASE
     Route: 048
  2. COMPOUNDED ESTROGEN CREAM [Concomitant]
     Route: 065

REACTIONS (11)
  - Nephrolithiasis [Recovered/Resolved]
  - Eye haemorrhage [Recovered/Resolved]
  - Liver disorder [Recovered/Resolved]
  - Hyperlipidaemia [Not Recovered/Not Resolved]
  - Dehydration [Recovered/Resolved]
  - Hypertension [Not Recovered/Not Resolved]
  - Peripheral coldness [Not Recovered/Not Resolved]
  - Poor peripheral circulation [Recovered/Resolved]
  - Malaise [Recovered/Resolved]
  - Retinal artery occlusion [Recovered/Resolved]
  - Blood pressure increased [Not Recovered/Not Resolved]

NARRATIVE: CASE EVENT DATE: 2018
